FAERS Safety Report 7954732-9 (Version None)
Quarter: 2011Q4

REPORT INFORMATION
  Report Type: 
  Country: None (occurrence: None)
  Receive Date: 20111129
  Receipt Date: 20111121
  Transmission Date: 20120403
  Serious: Yes (Other)
  Sender: FDA-Public Use
  Company Number: HU-ACCORD-011305

PATIENT
  Age: 22 Year
  Sex: Female

DRUGS (4)
  1. MESNA [Concomitant]
  2. CARBOPLATIN [Suspect]
     Indication: HODGKIN'S DISEASE
     Dates: start: 20100101
  3. IFOSFAMIDE [Suspect]
     Indication: HODGKIN'S DISEASE
     Dates: start: 20100101
  4. ETOPOSIDE [Suspect]
     Indication: HODGKIN'S DISEASE
     Dates: start: 20100101

REACTIONS (6)
  - HODGKIN'S DISEASE NODULAR SCLEROSIS STAGE IV [None]
  - OFF LABEL USE [None]
  - NEOPLASM PROGRESSION [None]
  - DRUG INEFFECTIVE [None]
  - BONE MARROW FAILURE [None]
  - STEM CELL TRANSPLANT [None]
